FAERS Safety Report 9099873 (Version 1)
Quarter: 2013Q1

REPORT INFORMATION
  Report Type: Spontaneous
  Country: FR (occurrence: FR)
  Receive Date: 20130215
  Receipt Date: 20130215
  Transmission Date: 20140127
  Serious: Yes (Other)
  Sender: FDA-Public Use
  Company Number: PHHY2010FR092813

PATIENT
  Sex: Female

DRUGS (1)
  1. COARTEM [Suspect]
     Indication: PLASMODIUM FALCIPARUM INFECTION
     Dosage: 4 DF, (AT 0 H, 8 H, 24 H, 36 H, 48 H, AND 60 H FOR 3 DAYS)
     Route: 048
     Dates: start: 20071112, end: 20071114

REACTIONS (3)
  - Prolonged labour [Unknown]
  - Anaemia [Unknown]
  - Maternal exposure during pregnancy [Unknown]
